FAERS Safety Report 15686186 (Version 2)
Quarter: 2019Q1

REPORT INFORMATION
  Report Type: Spontaneous
  Country: FI (occurrence: FI)
  Receive Date: 20181204
  Receipt Date: 20190121
  Transmission Date: 20190417
  Serious: Yes (Other)
  Sender: FDA-Public Use
  Company Number: PHHY2018FI167138

PATIENT

DRUGS (6)
  1. LAMOTRIGINE. [Suspect]
     Active Substance: LAMOTRIGINE
     Indication: EPILEPSY
     Dosage: 400 MG, QD
     Route: 065
  2. VIGABATRIN. [Suspect]
     Active Substance: VIGABATRIN
     Indication: EPILEPSY
     Dosage: 2250 MG, QD
     Route: 065
  3. ZONISAMIDE. [Suspect]
     Active Substance: ZONISAMIDE
     Indication: EPILEPSY
     Dosage: 150 MG, QD
     Route: 065
  4. LACOSAMIDE. [Suspect]
     Active Substance: LACOSAMIDE
     Indication: EPILEPSY
     Dosage: 100 MG, QD
     Route: 065
  5. VALPROATE SODIUM. [Suspect]
     Active Substance: VALPROATE SODIUM
     Indication: EPILEPSY
     Dosage: 900 MG, QD
     Route: 065
  6. TOPIRAMATE. [Suspect]
     Active Substance: TOPIRAMATE
     Indication: EPILEPSY
     Dosage: 350 MG, QD
     Route: 065

REACTIONS (3)
  - Pancreatitis [Unknown]
  - Amylase increased [Recovered/Resolved]
  - Gamma-glutamyltransferase increased [Not Recovered/Not Resolved]
